FAERS Safety Report 14626158 (Version 3)
Quarter: 2018Q3

REPORT INFORMATION
  Report Type: Report from Study
  Country: US (occurrence: US)
  Receive Date: 20180312
  Receipt Date: 20180918
  Transmission Date: 20181010
  Serious: Yes (Hospitalization, Other)
  Sender: FDA-Public Use
  Company Number: US-SA-2018SA064630

PATIENT
  Age: 47 Year
  Sex: Female

DRUGS (2)
  1. ALEMTUZUMAB [Suspect]
     Active Substance: ALEMTUZUMAB
     Dosage: 12 MG,QD
     Route: 041
     Dates: start: 20160404, end: 20160406
  2. ALEMTUZUMAB [Suspect]
     Active Substance: ALEMTUZUMAB
     Dosage: 12 MG,QD
     Route: 041
     Dates: start: 20150413, end: 20150415

REACTIONS (14)
  - Bronchitis [Recovered/Resolved]
  - Kidney infection [Recovered/Resolved]
  - Abdominal pain [Not Recovered/Not Resolved]
  - Asthma late onset [Recovered/Resolved]
  - Micturition urgency [Not Recovered/Not Resolved]
  - Dysuria [Recovered/Resolved]
  - Muscle spasms [Recovered/Resolved]
  - Inappropriate schedule of drug administration [Unknown]
  - Fungal skin infection [Not Recovered/Not Resolved]
  - Tinea pedis [Not Recovered/Not Resolved]
  - Loss of consciousness [Recovered/Resolved]
  - Tremor [Recovered/Resolved]
  - Urinary tract infection [Unknown]
  - Memory impairment [Recovered/Resolved]

NARRATIVE: CASE EVENT DATE: 2018
